FAERS Safety Report 5829476-X (Version None)
Quarter: 2008Q3

REPORT INFORMATION
  Report Type: 
  Country: None (occurrence: None)
  Receive Date: 20080729
  Receipt Date: 20060123
  Transmission Date: 20090109
  Serious: Yes (Other)
  Sender: FDA-Public Use
  Company Number: 006496

PATIENT
  Sex: Female

DRUGS (4)
  1. AYGESTIN [Suspect]
     Dosage: ORAL
     Route: 048
     Dates: start: 19800101, end: 19960101
  2. OGEN [Suspect]
     Dosage: ORAL
     Route: 048
     Dates: start: 19800101, end: 19960101
  3. PREMARIN [Suspect]
     Dates: start: 19800101, end: 19960101
  4. PROVERA [Suspect]
     Dosage: ORAL
     Route: 048
     Dates: start: 19800101, end: 19960101

REACTIONS (3)
  - BREAST CANCER FEMALE [None]
  - OESTROGEN RECEPTOR ASSAY POSITIVE [None]
  - PROGESTERONE RECEPTOR ASSAY POSITIVE [None]
